FAERS Safety Report 9189526 (Version 1)
Quarter: 2013Q1

REPORT INFORMATION
  Report Type: Spontaneous
  Country: US (occurrence: US)
  Receive Date: 20130326
  Receipt Date: 20130326
  Transmission Date: 20140127
  Serious: Yes (Other)
  Sender: FDA-Public Use
  Company Number: US-JNJFOC-20130308674

PATIENT
  Sex: Female

DRUGS (1)
  1. PANCREASE [Suspect]
     Indication: PRODUCT USED FOR UNKNOWN INDICATION
     Dosage: 21,000U
     Route: 048
     Dates: start: 1982

REACTIONS (1)
  - Neuropathy peripheral [Unknown]
